FAERS Safety Report 9326056 (Version 1)
Quarter: 2013Q2

REPORT INFORMATION
  Report Type: Report from Study
  Country: GR (occurrence: GR)
  Receive Date: 20130604
  Receipt Date: 20130604
  Transmission Date: 20140414
  Serious: Yes (Death, Other)
  Sender: FDA-Public Use
  Company Number: GR-ROCHE-1229517

PATIENT
  Sex: Female

DRUGS (3)
  1. BEVACIZUMAB [Suspect]
     Indication: BREAST CANCER METASTATIC
     Dosage: ON DAYS 1 AND 15 OF 4 WEEKS CYCLE.
     Route: 065
  2. CARBOPLATIN [Suspect]
     Indication: BREAST CANCER METASTATIC
     Dosage: TO ATTAIN AUC OF 2
     Route: 065
  3. PACLITAXEL [Suspect]
     Indication: BREAST CANCER METASTATIC
     Route: 065

REACTIONS (6)
  - Febrile neutropenia [Fatal]
  - Neutropenia [Unknown]
  - Anaemia [Unknown]
  - Neurotoxicity [Unknown]
  - Thrombocytopenia [Unknown]
  - Diarrhoea [Unknown]
